FAERS Safety Report 7834103-6 (Version None)
Quarter: 2011Q4

REPORT INFORMATION
  Report Type: 
  Country: None (occurrence: None)
  Receive Date: 20111020
  Receipt Date: 20111004
  Transmission Date: 20120403
  Serious: Yes (Life-Threatening, Hospitalization, Other)
  Sender: FDA-Public Use
  Company Number: 2011MA014914

PATIENT
  Age: 24 Year
  Sex: Female

DRUGS (2)
  1. CARBAMAZEPINE [Suspect]
     Indication: INTENTIONAL OVERDOSE
     Dosage: 56000 MG; X1; PO
     Route: 048
  2. OXAPROZIN [Suspect]
     Indication: INTENTIONAL OVERDOSE
     Dosage: 18000 MG; X1; PO
     Route: 048

REACTIONS (17)
  - SOMNOLENCE [None]
  - BLOOD PRESSURE DIASTOLIC INCREASED [None]
  - HAEMODIALYSIS [None]
  - NAUSEA [None]
  - VOMITING [None]
  - BLOOD GLUCOSE INCREASED [None]
  - MULTIPLE DRUG OVERDOSE [None]
  - LACERATION [None]
  - BLOOD SODIUM DECREASED [None]
  - BLOOD CREATININE INCREASED [None]
  - TOXICITY TO VARIOUS AGENTS [None]
  - DIZZINESS [None]
  - SINUS TACHYCARDIA [None]
  - INTESTINAL OBSTRUCTION [None]
  - BLOOD POTASSIUM INCREASED [None]
  - GASTROINTESTINAL SOUNDS ABNORMAL [None]
  - ABDOMINAL DISTENSION [None]
